FAERS Safety Report 4277292-5 (Version None)
Quarter: 2004Q1

REPORT INFORMATION
  Report Type: 
  Country: None (occurrence: None)
  Receive Date: 20040120
  Receipt Date: 20040108
  Transmission Date: 20041129
  Serious: Yes (Death, Hospitalization)
  Sender: FDA-Public Use
  Company Number: 200410163GDDC

PATIENT
  Age: 39 Year
  Sex: Female

DRUGS (1)
  1. DDAVP [Suspect]
     Indication: VON WILLEBRAND'S DISEASE
     Dosage: IV
     Route: 042
     Dates: start: 20030728, end: 20030730

REACTIONS (13)
  - BRAIN OEDEMA [None]
  - CARDIO-RESPIRATORY DISTRESS [None]
  - COMA [None]
  - DEPRESSED LEVEL OF CONSCIOUSNESS [None]
  - GRAND MAL CONVULSION [None]
  - HYPONATRAEMIA [None]
  - PNEUMONIA [None]
  - PNEUMONIA ASPIRATION [None]
  - POLYURIA [None]
  - PULMONARY EMBOLISM [None]
  - STATUS EPILEPTICUS [None]
  - THROMBOPHLEBITIS [None]
  - THROMBOPHLEBITIS PELVIC VEIN [None]
